FAERS Safety Report 8612752-5 (Version None)
Quarter: 2012Q3

REPORT INFORMATION
  Report Type: 
  Country: None (occurrence: None)
  Receive Date: 20120822
  Receipt Date: 20110829
  Transmission Date: 20120928
  Serious: No
  Sender: FDA-Public Use
  Company Number: US-ASTRAZENECA-2011SE51787

PATIENT
  Age: 76 Year
  Sex: Male
  Weight: 68 kg

DRUGS (2)
  1. MEDICATION FOR HIS HEART [Concomitant]
  2. SYMBICORT [Suspect]
     Indication: RESPIRATORY DISORDER
     Dosage: TOTAL DAILY DOSAGE  22 PUFFS,11 PUFFS  BID
     Route: 055

REACTIONS (2)
  - APHONIA [None]
  - INCORRECT DOSE ADMINISTERED [None]
